FAERS Safety Report 14624591 (Version 1)
Quarter: 2018Q1

REPORT INFORMATION
  Report Type: Spontaneous
  Country: US (occurrence: US)
  Receive Date: 20180311
  Receipt Date: 20180311
  Transmission Date: 20180509
  Serious: Yes (Disabling)
  Sender: FDA-Public Use
  Company Number: None

PATIENT
  Age: 46 Year
  Sex: Female
  Weight: 67.5 kg

DRUGS (8)
  1. BUPROPION HYDROCHLORIDE XL [Suspect]
     Active Substance: BUPROPION HYDROCHLORIDE
     Indication: DEPRESSION
     Dosage: ?          QUANTITY:30 TABLET(S);?
     Route: 048
  2. METRONIZADOLE TOPICAL [Concomitant]
  3. PROBIOTIC [Concomitant]
     Active Substance: PROBIOTICS NOS
  4. ESCITALOPRAM [Concomitant]
     Active Substance: ESCITALOPRAM OXALATE
  5. HISTAMINUM HYROCHLORICUM [Concomitant]
  6. ZINC. [Concomitant]
     Active Substance: ZINC
  7. ASHWAGANDHA [Concomitant]
     Active Substance: HERBALS
  8. VITAMIN B12 [Concomitant]
     Active Substance: CYANOCOBALAMIN

REACTIONS (9)
  - Nausea [None]
  - Headache [None]
  - Sluggishness [None]
  - Depressed mood [None]
  - Dizziness [None]
  - Insurance issue [None]
  - Fatigue [None]
  - Product substitution issue [None]
  - Mood swings [None]

NARRATIVE: CASE EVENT DATE: 20171201
